FAERS Safety Report 15372976 (Version 5)
Quarter: 2023Q1

REPORT INFORMATION
  Report Type: Other
  Country: GB (occurrence: None)
  Receive Date: 20180912
  Receipt Date: 20230119
  Transmission Date: 20230417
  Serious: Yes (Hospitalization)
  Sender: FDA-Public Use
  Company Number: GB-ROCHE-2182922

PATIENT
  Sex: Female

DRUGS (14)
  1. TOCILIZUMAB [Suspect]
     Active Substance: TOCILIZUMAB
     Indication: Rheumatoid arthritis
     Route: 058
     Dates: start: 2019
  2. TOCILIZUMAB [Suspect]
     Active Substance: TOCILIZUMAB
     Route: 058
     Dates: start: 20170101
  3. METHOTREXATE [Concomitant]
     Active Substance: METHOTREXATE
  4. PREDNISOLONE [Concomitant]
     Active Substance: PREDNISOLONE
  5. LYRICA [Concomitant]
     Active Substance: PREGABALIN
  6. RANITIDINE [Concomitant]
     Active Substance: RANITIDINE
  7. BISOPROLOL [Concomitant]
     Active Substance: BISOPROLOL
  8. METHOTREXATE SODIUM [Concomitant]
     Active Substance: METHOTREXATE SODIUM
  9. SULFASALAZINE [Concomitant]
     Active Substance: SULFASALAZINE
  10. RAMIPRIL [Concomitant]
     Active Substance: RAMIPRIL
  11. OMEPRAZOLE [Concomitant]
     Active Substance: OMEPRAZOLE
  12. PREGABALIN [Concomitant]
     Active Substance: PREGABALIN
  13. FOLIC ACID [Concomitant]
     Active Substance: FOLIC ACID
  14. CALCIUM [Concomitant]
     Active Substance: CALCIUM

REACTIONS (7)
  - Rheumatoid arthritis [Unknown]
  - Pain in extremity [Unknown]
  - Arthralgia [Unknown]
  - Stress [Unknown]
  - Peripheral swelling [Unknown]
  - Pain in extremity [Unknown]
  - Arthralgia [Unknown]
